FAERS Safety Report 8922902 (Version 2)
Quarter: 2012Q4

REPORT INFORMATION
  Report Type: 
  Country: BR (occurrence: BR)
  Receive Date: 20121123
  Receipt Date: 20121219
  Transmission Date: 20130627
  Serious: Yes (Hospitalization, Other)
  Sender: FDA-Public Use
  Company Number: BR-PFIZER INC-2012289714

PATIENT
  Sex: Female

DRUGS (2)
  1. SUTENT [Suspect]
     Dosage: 50 mg, UNK
     Dates: start: 2011
  2. SUTENT [Suspect]
     Dosage: UNK
     Dates: start: 2012

REACTIONS (8)
  - Dysentery [Unknown]
  - Pleural effusion [Unknown]
  - Dyspnoea [Unknown]
  - Muscular weakness [Unknown]
  - Diarrhoea [Unknown]
  - Aphthous stomatitis [Unknown]
  - Cardiac disorder [Unknown]
  - Respiratory disorder [Unknown]
